FAERS Safety Report 8009369-2 (Version None)
Quarter: 2011Q4

REPORT INFORMATION
  Report Type: 
  Country: None (occurrence: None)
  Receive Date: 20111221
  Receipt Date: 20111208
  Transmission Date: 20120403
  Serious: Yes (Life-Threatening, Hospitalization)
  Sender: FDA-Public Use
  Company Number: TCI2006A00008

PATIENT
  Age: 86 Year
  Sex: Female

DRUGS (14)
  1. TAKEPRON CAPSULES 30 (LANSOPRAZOLE) [Suspect]
     Indication: GASTROOESOPHAGEAL REFLUX DISEASE
     Dosage: 30 MG (30 MG, 1-2) PER ORAL
     Route: 048
     Dates: start: 20000101, end: 20000101
  2. TAKEPRON CAPSULES 30 (LANSOPRAZOLE) [Suspect]
     Indication: GASTROOESOPHAGEAL REFLUX DISEASE
     Dosage: 30 MG (30 MG, 1-2) PER ORAL
     Route: 048
     Dates: start: 20000401
  3. TAKEPRON CAPSULES 30 (LANSOPRAZOLE) [Suspect]
     Indication: GASTROOESOPHAGEAL REFLUX DISEASE
     Dosage: 30 MG (30 MG, 1-2) PER ORAL
     Route: 048
     Dates: start: 20000128, end: 20000301
  4. TAKEPRON CAPSULES 30 (LANSOPRAZOLE) [Suspect]
     Indication: GASTROOESOPHAGEAL REFLUX DISEASE
     Dosage: 30 MG (30 MG, 1-2) PER ORAL
     Route: 048
     Dates: start: 20001201
  5. ZANTAC [Concomitant]
  6. SELBEX (TEPRENONE) [Concomitant]
  7. CIMETIDINE HCL [Concomitant]
  8. SUCRALFATE [Concomitant]
  9. PRIMPERAN TAB [Concomitant]
  10. FK (SODIUM BICARBONATE, CALCIUM CARBONATE, MAGNESIUM ALUMINUM SILICATE [Concomitant]
  11. LANSOPRAZOLE [Suspect]
     Indication: GASTROOESOPHAGEAL REFLUX DISEASE
     Dosage: 1 IN 1 D PER ORAL
     Route: 048
     Dates: start: 20030723, end: 20041101
  12. LANSOPRAZOLE [Suspect]
     Indication: GASTROOESOPHAGEAL REFLUX DISEASE
     Dosage: 1 IN 1 D PER ORAL
     Route: 048
     Dates: end: 20050601
  13. LANSOPRAZOLE [Suspect]
     Indication: GASTROOESOPHAGEAL REFLUX DISEASE
     Dosage: 1 IN 1 D PER ORAL
     Route: 048
     Dates: start: 20020701
  14. LANSOPRAZOLE [Suspect]
     Indication: GASTROOESOPHAGEAL REFLUX DISEASE
     Dosage: 1 IN 1 D PER ORAL
     Route: 048
     Dates: start: 20021101

REACTIONS (46)
  - UNEVALUABLE EVENT [None]
  - CARDIOMYOPATHY [None]
  - PRURITUS [None]
  - OCULAR HYPERAEMIA [None]
  - HYPERHIDROSIS [None]
  - HAEMOLYSIS [None]
  - IRON DEFICIENCY ANAEMIA [None]
  - CARDIOMEGALY [None]
  - CONDITION AGGRAVATED [None]
  - EROSIVE OESOPHAGITIS [None]
  - GOUT [None]
  - ARTHRALGIA [None]
  - OESOPHAGEAL HAEMORRHAGE [None]
  - ARTERIOSCLEROTIC RETINOPATHY [None]
  - WHITE BLOOD CELL COUNT DECREASED [None]
  - SPINAL COMPRESSION FRACTURE [None]
  - CONJUNCTIVITIS [None]
  - DYSGEUSIA [None]
  - DIARRHOEA [None]
  - DYSPEPSIA [None]
  - GAIT DISTURBANCE [None]
  - COLON CANCER [None]
  - LIVER DISORDER [None]
  - OSTEOPOROSIS [None]
  - MIGRAINE [None]
  - INSOMNIA [None]
  - GASTRITIS ATROPHIC [None]
  - GASTROOESOPHAGEAL REFLUX DISEASE [None]
  - GASTRITIS [None]
  - GASTRITIS EROSIVE [None]
  - RENAL DISORDER [None]
  - ANAEMIA [None]
  - RASH [None]
  - LACUNAR INFARCTION [None]
  - BACK PAIN [None]
  - HYPOAESTHESIA [None]
  - CHOKING [None]
  - RHABDOMYOLYSIS [None]
  - ASTHENIA [None]
  - CATARACT [None]
  - MUSCULOSKELETAL PAIN [None]
  - COUGH [None]
  - EMPHYSEMA [None]
  - ABASIA [None]
  - EYE PRURITUS [None]
  - INTERVERTEBRAL DISC PROTRUSION [None]
